FAERS Safety Report 9768380 (Version 4)
Quarter: 2014Q3

REPORT INFORMATION
  Report Type: Report from Study
  Country: FR (occurrence: FR)
  Receive Date: 20131217
  Receipt Date: 20140911
  Transmission Date: 20150326
  Serious: Yes (Death, Hospitalization)
  Sender: FDA-Public Use
  Company Number: FR-B.I. PHARMACEUTICALS,INC./RIDGEFIELD-2012-EU-04317EU

PATIENT
  Age: 80 Year
  Sex: Female
  Weight: 50 kg

DRUGS (3)
  1. VINORELBINE [Suspect]
     Active Substance: VINORELBINE\VINORELBINE TARTRATE
     Indication: BREAST CANCER METASTATIC
     Dosage: 37 MG
     Route: 042
     Dates: start: 20120816, end: 20120906
  2. LOVENOX [Concomitant]
     Active Substance: ENOXAPARIN SODIUM
     Indication: THROMBOSIS PROPHYLAXIS
     Dosage: 0.4 ML
     Route: 065
  3. BIBW 2992 [Suspect]
     Active Substance: AFATINIB
     Indication: BREAST CANCER METASTATIC
     Dosage: 40 MG
     Route: 048
     Dates: start: 20120817, end: 20120822

REACTIONS (4)
  - Diarrhoea [Recovered/Resolved]
  - Sepsis [Fatal]
  - General physical health deterioration [Recovered/Resolved]
  - Dehydration [Recovered/Resolved]

NARRATIVE: CASE EVENT DATE: 20120822
